FAERS Safety Report 24341662 (Version 2)
Quarter: 2024Q3

REPORT INFORMATION
  Report Type: Spontaneous
  Country: FR (occurrence: FR)
  Receive Date: 20240920
  Receipt Date: 20240930
  Transmission Date: 20241016
  Serious: Yes (Death)
  Sender: ZYDUS PHARM
  Company Number: FR-SANDOZ-SDZ2024FR069904

PATIENT

DRUGS (1)
  1. DULOXETINE [Suspect]
     Active Substance: DULOXETINE
     Indication: Product used for unknown indication
     Dosage: UNK
     Route: 065

REACTIONS (3)
  - Bezoar [Fatal]
  - Toxicity to various agents [Fatal]
  - Intentional overdose [Fatal]
